FAERS Safety Report 9670925 (Version 1)
Quarter: 2013Q4

REPORT INFORMATION
  Report Type: Spontaneous
  Country: GB (occurrence: None)
  Receive Date: 20131104
  Receipt Date: 20131104
  Transmission Date: 20140711
  Serious: Yes (Other)
  Sender: FDA-Public Use
  Company Number: AUR-APL-2013-09054

PATIENT
  Age: 20 Year
  Sex: Female
  Weight: 59.87 kg

DRUGS (9)
  1. MIRTAZAPINE (MIRTAZAPINE) [Suspect]
     Indication: ANXIETY
     Dosage: 15 MG (15 MG, 1 IN 1 D), ORAL
     Route: 048
  2. MIRTAZAPINE (MIRTAZAPINE) [Suspect]
     Indication: ASPERGER^S DISORDER
     Dosage: 15 MG (15 MG, 1 IN 1 D), ORAL
     Route: 048
  3. MIRTAZAPINE (MIRTAZAPINE) [Suspect]
     Indication: DEPRESSION
     Dosage: 15 MG (15 MG, 1 IN 1 D), ORAL
     Route: 048
  4. MIRTAZAPINE (MIRTAZAPINE) [Suspect]
     Indication: PSYCHOTIC DISORDER
     Dosage: 15 MG (15 MG, 1 IN 1 D), ORAL
     Route: 048
  5. CYCLIZINE (CYCLIZINE) [Concomitant]
  6. MACROGOL (MACROGOL) [Concomitant]
  7. MALIC ACID (MALIC ACID) [Concomitant]
  8. PREGABALIN (PREGABALIN) [Concomitant]
  9. SERTRALINE (SERTRALINE) [Concomitant]

REACTIONS (5)
  - Anger [None]
  - Aggression [None]
  - Mood swings [None]
  - Frustration [None]
  - Intentional self-injury [None]
